FAERS Safety Report 24986657 (Version 1)
Quarter: 2025Q1

REPORT INFORMATION
  Report Type: Spontaneous
  Country: CN (occurrence: CN)
  Receive Date: 20250219
  Receipt Date: 20250219
  Transmission Date: 20250408
  Serious: Yes (Other)
  Sender: BAXTER
  Company Number: None

PATIENT
  Age: 82 Year
  Sex: Male
  Weight: 60 kg

DRUGS (2)
  1. MANNITOL [Suspect]
     Active Substance: MANNITOL
     Indication: Angioedema
     Route: 041
     Dates: start: 20250130, end: 20250131
  2. MANNITOL [Suspect]
     Active Substance: MANNITOL
     Indication: Diuretic therapy

REACTIONS (2)
  - Dyspnoea [Recovering/Resolving]
  - Chills [Recovering/Resolving]

NARRATIVE: CASE EVENT DATE: 20250131
